FAERS Safety Report 20979870 (Version 3)
Quarter: 2023Q2

REPORT INFORMATION
  Report Type: Report from Study
  Country: BR (occurrence: BR)
  Receive Date: 20220620
  Receipt Date: 20230613
  Transmission Date: 20230721
  Serious: Yes (Other)
  Sender: FDA-Public Use
  Company Number: BR-CELLTRION INC.-2022BR009499

PATIENT

DRUGS (9)
  1. TRUXIMA [Suspect]
     Active Substance: RITUXIMAB-ABBS
     Indication: Systemic lupus erythematosus
     Dosage: 1000MG IN THE 1ST CICLE, 1000MG IN 2ND  CYCLE (15DAYS AFTER THE 1ST ONE) AND NEXT CYCLE 10 MONTHS LA
     Route: 042
  2. BUDESONIDE\FORMOTEROL FUMARATE [Concomitant]
     Active Substance: BUDESONIDE\FORMOTEROL FUMARATE
     Indication: Chronic obstructive pulmonary disease
     Dosage: 1 PILL EVERY DAY, (12 MCG / 400 MCG, DAILY, (START: APPROXIMATELY 3 YEARS)
     Route: 048
  3. CLONAZEPAM [Concomitant]
     Active Substance: CLONAZEPAM
     Dosage: 1 PILL EVERY NIGHT, (START: APPROXIMATELY 15 YEARS)
     Route: 048
  4. AMITRIPTYLINE [Concomitant]
     Active Substance: AMITRIPTYLINE
     Dosage: 2 PILL PER NIGHT, 1 PILL PER DAY, (START: APPROXIMATELY 7 YEARS)
     Route: 048
  5. CITALOPRAM [Concomitant]
     Active Substance: CITALOPRAM HYDROBROMIDE
     Dosage: 1 PILL EVERY DAY (START:APPROXIMATELY 3 YEARS)
     Route: 048
  6. PREDNISONE [Concomitant]
     Active Substance: PREDNISONE
     Indication: Pain
     Dosage: 5 MG IN CASE OF PAIN, TO HELP THE LUPUS TREATMENT
  7. ALPRAZOLAM [Concomitant]
     Active Substance: ALPRAZOLAM
     Dosage: 2 PILLS A DAY
  8. QUETIAPINE [Concomitant]
     Active Substance: QUETIAPINE
     Dosage: 2 PILLS PER DAY FOR 6 MONTHS
  9. METHOTREXATE [Concomitant]
     Active Substance: METHOTREXATE
     Dosage: 4 PILLS ONCE A WEEK FOFR 6 MONTHS

REACTIONS (12)
  - Systemic lupus erythematosus [Unknown]
  - Injury [Recovered/Resolved]
  - Ill-defined disorder [Recovered/Resolved]
  - Feeling abnormal [Unknown]
  - Erythema [Recovered/Resolved]
  - Fatigue [Recovered/Resolved]
  - Anxiety [Recovered/Resolved]
  - Tremor [Unknown]
  - Depression [Unknown]
  - Weight decreased [Unknown]
  - Confusional state [Unknown]
  - Off label use [Unknown]
